FAERS Safety Report 5361846-9 (Version None)
Quarter: 2007Q2

REPORT INFORMATION
  Report Type: 
  Country: None (occurrence: None)
  Receive Date: 20070530
  Receipt Date: 20070201
  Transmission Date: 20071010
  Serious: No
  Sender: FDA-Public Use
  Company Number: 2006PV027133

PATIENT
  Age: 72 Year
  Sex: Female
  Weight: 108.8633 kg

DRUGS (3)
  1. BYETTA [Suspect]
     Indication: DIABETES MELLITUS NON-INSULIN-DEPENDENT
     Dosage: 5 MCG; BID; SC
     Route: 058
     Dates: start: 20061214, end: 20070101
  2. BYETTA [Suspect]
  3. HUMULIN 70/30 [Concomitant]

REACTIONS (3)
  - BLOOD GLUCOSE INCREASED [None]
  - DECREASED APPETITE [None]
  - DRUG INEFFECTIVE [None]
